FAERS Safety Report 11043283 (Version 1)
Quarter: 2015Q2

REPORT INFORMATION
  Report Type: Spontaneous
  Country: US (occurrence: None)
  Receive Date: 20150416
  Receipt Date: 20150416
  Transmission Date: 20150821
  Serious: Yes (Disabling)
  Sender: FDA-Public Use
  Company Number: None

PATIENT
  Age: 66 Year
  Sex: Female
  Weight: 56.7 kg

DRUGS (21)
  1. AMITRIPTYLINE [Concomitant]
     Active Substance: AMITRIPTYLINE
  2. CYCLOBENZAPRINE [Concomitant]
     Active Substance: CYCLOBENZAPRINE
  3. LEVOFLOXACIN 250 MG [Suspect]
     Active Substance: LEVOFLOXACIN
     Indication: EAR INFECTION
     Dosage: 2 TABS DAY 1, THEN 1 TAB DAILY
     Route: 048
     Dates: start: 20150306, end: 20150312
  4. CEPHALEXIN. [Concomitant]
     Active Substance: CEPHALEXIN
  5. COQ10 [Concomitant]
     Active Substance: UBIDECARENONE
  6. PRAVASTATIN [Concomitant]
     Active Substance: PRAVASTATIN\PRAVASTATIN SODIUM
  7. QVAR [Concomitant]
     Active Substance: BECLOMETHASONE DIPROPIONATE
  8. TRAZODONE [Concomitant]
     Active Substance: TRAZODONE HYDROCHLORIDE
  9. MYCOPHENOLATE [Concomitant]
     Active Substance: MYCOPHENOLIC ACID
  10. CALCITRIOL. [Concomitant]
     Active Substance: CALCITRIOL
  11. MULTIVITAMIN NO CALCIUM [Concomitant]
  12. ASTELIN [Concomitant]
     Active Substance: AZELASTINE HYDROCHLORIDE
  13. ZANTAC [Concomitant]
     Active Substance: RANITIDINE HYDROCHLORIDE
  14. HYOSCYAMINE [Concomitant]
     Active Substance: HYOSCYAMINE
  15. PREDNISONE. [Concomitant]
     Active Substance: PREDNISONE
  16. VENTOLIN [Concomitant]
     Active Substance: ALBUTEROL SULFATE
  17. OSTEO BIFLEX 5-LOXIN (CHONDRORTIM/GLUCOSAMIHE) [Concomitant]
     Active Substance: CHONDROITIN SULFATE (BOVINE)\GLUCOSAMINE SULFATE
  18. ALLOPURINOL. [Concomitant]
     Active Substance: ALLOPURINOL
  19. CYCLOSPORINE. [Concomitant]
     Active Substance: CYCLOSPORINE
  20. FUROSEMIDE. [Concomitant]
     Active Substance: FUROSEMIDE
  21. SINGULAIR [Concomitant]
     Active Substance: MONTELUKAST SODIUM

REACTIONS (2)
  - Tendon rupture [None]
  - Tendonitis [None]

NARRATIVE: CASE EVENT DATE: 20150306
